FAERS Safety Report 19682030 (Version 2)
Quarter: 2021Q3

REPORT INFORMATION
  Report Type: Spontaneous
  Country: IT (occurrence: IT)
  Receive Date: 20210810
  Receipt Date: 20210917
  Transmission Date: 20211014
  Serious: Yes (Hospitalization)
  Sender: FDA-Public Use
  Company Number: NVSC2021IT178403

PATIENT
  Age: 78 Year
  Sex: Male

DRUGS (3)
  1. TRIATEC [Concomitant]
     Indication: HYPERTENSION
     Dosage: 5 MG
     Route: 048
  2. ACETYLSALICYLIC ACID [Suspect]
     Active Substance: ASPIRIN
     Indication: THROMBOSIS PROPHYLAXIS
     Dosage: 100 MG, QD
     Route: 048
     Dates: start: 20210617, end: 20210730
  3. CLOPIDOGREL [Suspect]
     Active Substance: CLOPIDOGREL BISULFATE
     Indication: THROMBOSIS PROPHYLAXIS
     Dosage: 75 MG, QD
     Route: 048
     Dates: start: 20191006

REACTIONS (2)
  - Blood loss anaemia [Recovered/Resolved]
  - Haematuria [Recovered/Resolved]

NARRATIVE: CASE EVENT DATE: 20210730
